FAERS Safety Report 11119708 (Version 1)
Quarter: 2015Q2

REPORT INFORMATION
  Report Type: Report from Study
  Country: US (occurrence: US)
  Receive Date: 20150518
  Receipt Date: 20150518
  Transmission Date: 20150821
  Serious: Yes (Other)
  Sender: FDA-Public Use
  Company Number: US-ABBVIE-15P-163-1390966-00

PATIENT
  Age: 45 Year
  Sex: Female

DRUGS (6)
  1. XANAX [Concomitant]
     Active Substance: ALPRAZOLAM
     Indication: PRODUCT USED FOR UNKNOWN INDICATION
     Dosage: DAILY AS NEEDED
  2. LUPRON DEPOT [Suspect]
     Active Substance: LEUPROLIDE ACETATE
     Dosage: DURATION FOR 6-9 MONTHS
     Route: 050
     Dates: start: 1994
  3. LUPRON DEPOT [Suspect]
     Active Substance: LEUPROLIDE ACETATE
     Dosage: DURATION FOR 6-9 MONTHS
     Route: 050
     Dates: start: 1996
  4. LUPRON DEPOT [Suspect]
     Active Substance: LEUPROLIDE ACETATE
     Indication: ENDOMETRIOSIS
     Route: 050
     Dates: start: 1992
  5. NORETHINDRONE ACETATE. [Suspect]
     Active Substance: NORETHINDRONE ACETATE
     Indication: ENDOMETRIOSIS
     Route: 048
     Dates: start: 200812
  6. LUPRON DEPOT [Suspect]
     Active Substance: LEUPROLIDE ACETATE
     Route: 050
     Dates: start: 200806

REACTIONS (18)
  - Vaginal haemorrhage [Unknown]
  - Blood pressure increased [Unknown]
  - Dyspnoea [Unknown]
  - Palpitations [Unknown]
  - Flatulence [Unknown]
  - Endometriosis [Unknown]
  - Endometriosis [Unknown]
  - Endometrial ablation [Unknown]
  - Hot flush [Unknown]
  - Migraine [Unknown]
  - Intestinal mass [Unknown]
  - Endometriosis [Unknown]
  - Vaginoplasty [Unknown]
  - Rectal haemorrhage [Unknown]
  - Hysterectomy [Unknown]
  - Wisdom teeth removal [Unknown]
  - Urethral disorder [Unknown]
  - Palpitations [Unknown]

NARRATIVE: CASE EVENT DATE: 1994
